FAERS Safety Report 10149986 (Version 8)
Quarter: 2017Q2

REPORT INFORMATION
  Report Type: Spontaneous
  Country: US (occurrence: US)
  Receive Date: 20140502
  Receipt Date: 20170531
  Transmission Date: 20170829
  Serious: Yes (Hospitalization, Disabling, Other)
  Sender: FDA-Public Use
  Company Number: US-009507513-1205USA01833

PATIENT
  Sex: Male
  Weight: 83.45 kg

DRUGS (4)
  1. PROPECIA [Suspect]
     Active Substance: FINASTERIDE
     Indication: ALOPECIA
     Dosage: 1 MG, QD
     Route: 048
     Dates: start: 201003, end: 201102
  2. FINASTERIDE. [Suspect]
     Active Substance: FINASTERIDE
     Indication: ALOPECIA
     Dosage: 5 MG, UNK
     Route: 048
     Dates: start: 201102, end: 201107
  3. FINASTERIDE. [Suspect]
     Active Substance: FINASTERIDE
     Indication: ALOPECIA
     Dosage: 5 MG, UNK
     Route: 048
     Dates: start: 20101223, end: 20110506
  4. PROSCAR [Suspect]
     Active Substance: FINASTERIDE
     Indication: ANDROGENETIC ALOPECIA
     Dosage: 5 MG, QD 1/4 TO 1/2 TABLET
     Route: 048
     Dates: start: 20101223, end: 201105

REACTIONS (30)
  - Panic attack [Recovered/Resolved]
  - Insomnia [Not Recovered/Not Resolved]
  - Intentional product misuse [Unknown]
  - Spermatozoa progressive motility decreased [Unknown]
  - Anxiety [Not Recovered/Not Resolved]
  - Pain [Not Recovered/Not Resolved]
  - Erectile dysfunction [Not Recovered/Not Resolved]
  - Ejaculation failure [Not Recovered/Not Resolved]
  - Sexual dysfunction [Not Recovered/Not Resolved]
  - Sperm concentration decreased [Not Recovered/Not Resolved]
  - Adverse event [Unknown]
  - Suicidal ideation [Recovered/Resolved]
  - Ejaculation disorder [Not Recovered/Not Resolved]
  - Depression [Not Recovered/Not Resolved]
  - Semen liquefaction abnormal [Not Recovered/Not Resolved]
  - Anger [Unknown]
  - Adverse event [Recovering/Resolving]
  - Libido decreased [Unknown]
  - Cognitive disorder [Not Recovered/Not Resolved]
  - Genital hypoaesthesia [Not Recovered/Not Resolved]
  - Drug administration error [Unknown]
  - Sexual dysfunction [Not Recovered/Not Resolved]
  - Libido decreased [Not Recovered/Not Resolved]
  - Dysarthria [Recovered/Resolved]
  - Personality change [Recovering/Resolving]
  - Genital hypoaesthesia [Not Recovered/Not Resolved]
  - Testicular failure [Unknown]
  - Testicular mass [Unknown]
  - Wrong technique in product usage process [Unknown]
  - Semen volume decreased [Not Recovered/Not Resolved]

NARRATIVE: CASE EVENT DATE: 20101223
